FAERS Safety Report 14541730 (Version 1)
Quarter: 2018Q1

REPORT INFORMATION
  Report Type: Spontaneous
  Country: GB (occurrence: GB)
  Receive Date: 20180216
  Receipt Date: 20180216
  Transmission Date: 20180509
  Serious: Yes (Other)
  Sender: FDA-Public Use
  Company Number: GB-TEVA-2018-GB-857990

PATIENT
  Age: 58 Year
  Sex: Female
  Weight: 72 kg

DRUGS (17)
  1. PARACETAMOL [Concomitant]
     Active Substance: ACETAMINOPHEN
     Dosage: FOUR TIMES DAILY.
     Route: 065
     Dates: start: 20161102
  2. FEXOFENADINE [Concomitant]
     Active Substance: FEXOFENADINE\FEXOFENADINE HYDROCHLORIDE
     Indication: RASH
     Dosage: WHEN GETS RASH
     Route: 065
     Dates: start: 20160106
  3. PAROXETINE. [Concomitant]
     Active Substance: PAROXETINE
     Route: 065
     Dates: start: 20090304
  4. PREGABALIN. [Concomitant]
     Active Substance: PREGABALIN
     Dosage: NIGHT
     Route: 065
     Dates: start: 20150619
  5. FYBOGEL [Concomitant]
     Active Substance: PLANTAGO OVATA SEED
     Dosage: USE AS DIRECTED
     Route: 065
     Dates: start: 20161130
  6. CODEINE PHOSPHATE [Concomitant]
     Active Substance: CODEINE PHOSPHATE
     Dosage: ONE TO FOUR AS NEEDED UP TO TO BE TAKEN FOUR TIM....
     Route: 065
     Dates: start: 20161102
  7. LAMOTRIGINE. [Concomitant]
     Active Substance: LAMOTRIGINE
     Route: 065
     Dates: start: 20151204
  8. METRONIDAZOLE. [Suspect]
     Active Substance: METRONIDAZOLE
     Route: 065
     Dates: start: 20170724, end: 20170727
  9. VENTOLIN [Concomitant]
     Active Substance: ALBUTEROL SULFATE
     Route: 055
     Dates: start: 20150702
  10. LEVOCETIRIZINE [Concomitant]
     Active Substance: LEVOCETIRIZINE
     Route: 065
     Dates: start: 20080327
  11. ZOLPIDEM [Concomitant]
     Active Substance: ZOLPIDEM\ZOLPIDEM TARTRATE
     Dosage: AT NIGHT.
     Route: 065
     Dates: start: 20170719
  12. PREMARIN [Concomitant]
     Active Substance: ESTROGENS, CONJUGATED
     Route: 065
     Dates: start: 20170621
  13. PREDNISOLONE. [Concomitant]
     Active Substance: PREDNISOLONE
     Route: 065
     Dates: start: 20170518, end: 20170523
  14. FLUTICASONE. [Concomitant]
     Active Substance: FLUTICASONE
     Route: 065
     Dates: start: 20050128
  15. MST CONTINUS [Concomitant]
     Active Substance: MORPHINE SULFATE
     Route: 065
     Dates: start: 20161130
  16. FORMOTEROL FUMARATE [Concomitant]
     Active Substance: FORMOTEROL FUMARATE
     Route: 055
     Dates: start: 20160728
  17. DIAZEPAM. [Concomitant]
     Active Substance: DIAZEPAM
     Dosage: BUT NOT EVERY DAY.
     Route: 065
     Dates: start: 20170706

REACTIONS (1)
  - Nervous system disorder [Unknown]

NARRATIVE: CASE EVENT DATE: 20170725
